FAERS Safety Report 9456822 (Version 1)
Quarter: 2013Q3

REPORT INFORMATION
  Report Type: Spontaneous
  Country: US (occurrence: US)
  Receive Date: 20130813
  Receipt Date: 20130813
  Transmission Date: 20140515
  Serious: No
  Sender: FDA-Public Use
  Company Number: US-TEVA-425432USA

PATIENT
  Sex: Female
  Weight: 85.35 kg

DRUGS (4)
  1. COPAXONE [Suspect]
     Indication: RELAPSING-REMITTING MULTIPLE SCLEROSIS
     Dates: start: 201212
  2. VITAMIN D [Concomitant]
     Indication: VITAMIN SUPPLEMENTATION
  3. IRON [Concomitant]
     Indication: VITAMIN SUPPLEMENTATION
  4. ADVIL [Concomitant]

REACTIONS (1)
  - Pregnancy [Unknown]
